FAERS Safety Report 6215119-2 (Version None)
Quarter: 2009Q2

REPORT INFORMATION
  Report Type: 
  Country: None (occurrence: None)
  Receive Date: 20090604
  Receipt Date: 20090603
  Transmission Date: 20091009
  Serious: Yes (Hospitalization, Other)
  Sender: FDA-Public Use
  Company Number: US-PFIZER INC-2009162877

PATIENT
  Sex: Male
  Weight: 50.802 kg

DRUGS (5)
  1. GEODON [Suspect]
     Indication: THINKING ABNORMAL
     Dates: start: 20081031, end: 20081118
  2. GEODON [Interacting]
     Indication: ANXIETY
  3. BUSPAR [Interacting]
     Dates: end: 20081112
  4. LUVOX [Concomitant]
     Dosage: UNK
  5. SEROQUEL [Concomitant]
     Dates: end: 20081001

REACTIONS (5)
  - ABNORMAL DREAMS [None]
  - COGNITIVE DISORDER [None]
  - DRUG INTERACTION [None]
  - PALLOR [None]
  - SOMNOLENCE [None]
